FAERS Safety Report 22259203 (Version 21)
Quarter: 2024Q2

REPORT INFORMATION
  Report Type: Spontaneous
  Country: CA (occurrence: CA)
  Receive Date: 20230427
  Receipt Date: 20240517
  Transmission Date: 20240716
  Serious: Yes (Other)
  Sender: FDA-Public Use
  Company Number: CA-PFIZER INC-202300170109

PATIENT
  Age: 58 Year
  Sex: Female

DRUGS (8)
  1. ABRILADA [Suspect]
     Active Substance: ADALIMUMAB-AFZB
     Indication: Colitis ulcerative
     Dosage: 1 DF,160 MG WEEK 0, 80 MG WEEK 2, 40 MG EVERY OTHER WEEK STARTING WEEK 4
     Route: 058
     Dates: start: 20230414
  2. ABRILADA [Suspect]
     Active Substance: ADALIMUMAB-AFZB
     Dosage: UNK
     Route: 058
     Dates: start: 20230501, end: 202305
  3. ABRILADA [Suspect]
     Active Substance: ADALIMUMAB-AFZB
     Dosage: 160 MG WEEK 0, 80 MG WEEK 2, 40 MG EVERY OTHER WEEK STARTING WEEK 4
     Route: 058
     Dates: start: 20230504
  4. ABRILADA [Suspect]
     Active Substance: ADALIMUMAB-AFZB
     Dosage: UNK, EVERY 3 WEEKS
     Route: 058
     Dates: start: 2023
  5. ABRILADA [Suspect]
     Active Substance: ADALIMUMAB-AFZB
     Dosage: 160 MG WEEK 0, 80 MG WEEK 2, 40 MG EVERY OTHER WEEK STARTING WEEK 4
     Route: 058
     Dates: start: 202312, end: 202401
  6. COVID-19 VACCINE [Concomitant]
     Indication: COVID-19 immunisation
     Dosage: UNK
  7. INFLUENZA VIRUS VACCINE [Concomitant]
     Active Substance: INFLUENZA VIRUS VACCINE
     Indication: Immunisation
     Dosage: UNK
  8. PREDNISONE [Concomitant]
     Active Substance: PREDNISONE
     Dosage: 1 DF

REACTIONS (56)
  - Haematochezia [Unknown]
  - Clostridium difficile infection [Recovered/Resolved]
  - Blood cholesterol increased [Recovering/Resolving]
  - Drug ineffective [Unknown]
  - Condition aggravated [Not Recovered/Not Resolved]
  - Headache [Not Recovered/Not Resolved]
  - Nausea [Unknown]
  - Fatigue [Unknown]
  - Back pain [Unknown]
  - Quality of life decreased [Not Recovered/Not Resolved]
  - Abdominal pain upper [Not Recovered/Not Resolved]
  - Injection site rash [Recovered/Resolved]
  - Injection site pain [Unknown]
  - Rash macular [Recovered/Resolved]
  - Gastrointestinal sounds abnormal [Unknown]
  - Rash [Not Recovered/Not Resolved]
  - Malaise [Not Recovered/Not Resolved]
  - Diarrhoea [Recovered/Resolved]
  - Mood disorder due to a general medical condition [Not Recovered/Not Resolved]
  - Muscle spasms [Not Recovered/Not Resolved]
  - Arthralgia [Not Recovered/Not Resolved]
  - Stress [Not Recovered/Not Resolved]
  - Decreased appetite [Not Recovered/Not Resolved]
  - Stomatitis [Not Recovered/Not Resolved]
  - Tongue disorder [Not Recovered/Not Resolved]
  - Pharyngeal disorder [Recovering/Resolving]
  - Mucous stools [Unknown]
  - Pharyngeal swelling [Recovering/Resolving]
  - Mouth swelling [Unknown]
  - Abdominal discomfort [Unknown]
  - Rash [Not Recovered/Not Resolved]
  - Urticaria [Not Recovered/Not Resolved]
  - Swelling [Not Recovered/Not Resolved]
  - Dysphonia [Recovering/Resolving]
  - Oropharyngeal pain [Recovering/Resolving]
  - Oropharyngeal pain [Not Recovered/Not Resolved]
  - Lip injury [Unknown]
  - Lip pain [Unknown]
  - Lipids abnormal [Unknown]
  - Skin lesion [Unknown]
  - COVID-19 [Not Recovered/Not Resolved]
  - Painful respiration [Not Recovered/Not Resolved]
  - Stomatitis [Not Recovered/Not Resolved]
  - Pain in jaw [Not Recovered/Not Resolved]
  - Glossodynia [Not Recovered/Not Resolved]
  - Crying [Not Recovered/Not Resolved]
  - Cystitis [Recovered/Resolved]
  - Urinary tract infection [Recovered/Resolved]
  - Myalgia [Recovered/Resolved]
  - Asthenia [Recovered/Resolved]
  - Fatigue [Recovered/Resolved]
  - Alopecia [Recovering/Resolving]
  - Injection site rash [Unknown]
  - Injection site pruritus [Not Recovered/Not Resolved]
  - Peripheral swelling [Not Recovered/Not Resolved]
  - Off label use [Unknown]

NARRATIVE: CASE EVENT DATE: 20230101
